FAERS Safety Report 12253258 (Version 1)
Quarter: 2016Q2

REPORT INFORMATION
  Report Type: Spontaneous
  Country: JP (occurrence: JP)
  Receive Date: 20160411
  Receipt Date: 20160411
  Transmission Date: 20160815
  Serious: Yes (Hospitalization)
  Sender: FDA-Public Use
  Company Number: JP-GLAXOSMITHKLINE-JP2016JPN028685

PATIENT
  Age: 12 Year
  Sex: Male
  Weight: 37 kg

DRUGS (5)
  1. RELENZA [Suspect]
     Active Substance: ZANAMIVIR
     Indication: INFLUENZA
     Dosage: 10 MG, BID
     Route: 055
     Dates: start: 20160218, end: 20160220
  2. CARBOCISTEINE [Suspect]
     Active Substance: CARBOCYSTEINE
     Route: 048
  3. MEDICON (DEXTROMETHORPHAN HYDROBROMIDE + POTASSIUM CRESOLSULFONATE) [Concomitant]
  4. CALONAL [Concomitant]
     Active Substance: ACETAMINOPHEN
  5. CLARITHROMYCIN. [Concomitant]
     Active Substance: CLARITHROMYCIN
     Dosage: UNK

REACTIONS (9)
  - Pruritus [Not Recovered/Not Resolved]
  - Rash [Recovering/Resolving]
  - Conjunctival hyperaemia [Recovering/Resolving]
  - Rash generalised [Recovering/Resolving]
  - Generalised erythema [Not Recovered/Not Resolved]
  - Insomnia [Recovering/Resolving]
  - Lymphadenopathy [Recovering/Resolving]
  - Drug eruption [Recovering/Resolving]
  - Pyrexia [Recovered/Resolved]

NARRATIVE: CASE EVENT DATE: 20160218
